FAERS Safety Report 9742242 (Version 1)
Quarter: 2013Q4

REPORT INFORMATION
  Report Type: Spontaneous
  Country: US (occurrence: US)
  Receive Date: 20131210
  Receipt Date: 20131210
  Transmission Date: 20140711
  Serious: No
  Sender: FDA-Public Use
  Company Number: US-009507513-1312USA003559

PATIENT
  Age: 70 Year
  Sex: Female

DRUGS (5)
  1. COSOPT [Suspect]
     Indication: GLAUCOMA
     Dosage: 2 GTT, BID, ONE DROP IN THE RIGHT AND LEFT EYE IN THE MORNING AND THEN ONE DROP IN BOTH EYES AT NIGH
     Route: 047
     Dates: start: 201303, end: 201304
  2. COSOPT [Suspect]
     Dosage: 2 GTT, QD, 1 DROP IN THE RIGHT EYE ALONG WITH ONE DROP IN THE LEFT EYE IN THE MORNING
     Route: 047
     Dates: end: 201303
  3. TIMOLOL MALEATE [Concomitant]
  4. ZIOPTAN [Concomitant]
  5. LOTEMAX [Concomitant]

REACTIONS (3)
  - Corneal irritation [Recovered/Resolved]
  - Dry eye [Recovered/Resolved]
  - Eye pain [Recovered/Resolved]
